FAERS Safety Report 10754192 (Version 1)
Quarter: 2015Q1

REPORT INFORMATION
  Report Type: Spontaneous
  Country: IN (occurrence: IN)
  Receive Date: 20150202
  Receipt Date: 20150202
  Transmission Date: 20150721
  Serious: Yes (Hospitalization)
  Sender: FDA-Public Use
  Company Number: IN-SUN PHARMACEUTICAL INDUSTRIES LTD-2015SUN00294

PATIENT

DRUGS (8)
  1. FERROUS FUMARATE [Concomitant]
     Active Substance: FERROUS FUMARATE
     Dosage: 350 MG, UNK
     Route: 048
  2. OLANZAPINE 5 MG TABLETS [Suspect]
     Active Substance: OLANZAPINE
     Indication: DELUSIONAL DISORDER, UNSPECIFIED TYPE
     Dosage: 15 MG/DAY, UNK
     Route: 048
  3. OLANZAPINE 5 MG TABLETS [Suspect]
     Active Substance: OLANZAPINE
     Dosage: 10 MG/DAY, UNK
     Route: 048
  4. OLANZAPINE. [Suspect]
     Active Substance: OLANZAPINE
     Indication: DELUSIONAL DISORDER, UNSPECIFIED TYPE
     Dosage: 10 MG/DAY, UNK
     Route: 030
  5. CLONAZEPAM. [Concomitant]
     Active Substance: CLONAZEPAM
     Dosage: 2 MG, AT BEDTIME
  6. CLONAZEPAM. [Concomitant]
     Active Substance: CLONAZEPAM
     Dosage: 1 MG, AT BEDTIME
  7. VITAMIN B12 [Concomitant]
     Active Substance: CYANOCOBALAMIN
     Route: 048
  8. ASCORBIC ACID. [Concomitant]
     Active Substance: ASCORBIC ACID
     Route: 048

REACTIONS (1)
  - Restless legs syndrome [Recovered/Resolved]
